FAERS Safety Report 6528471-5 (Version None)
Quarter: 2010Q1

REPORT INFORMATION
  Report Type: 
  Country: None (occurrence: None)
  Receive Date: 20100106
  Receipt Date: 20100104
  Transmission Date: 20100710
  Serious: Yes (Hospitalization)
  Sender: FDA-Public Use
  Company Number: A0837460A

PATIENT
  Sex: Female

DRUGS (1)
  1. DEMECLOCYCLINE HYDROCHLORIDE [Suspect]
     Route: 048

REACTIONS (3)
  - ABDOMINAL DISCOMFORT [None]
  - HYPOKALAEMIA [None]
  - HYPONATRAEMIA [None]
